FAERS Safety Report 7622341-7 (Version None)
Quarter: 2011Q3

REPORT INFORMATION
  Report Type: 
  Country: None (occurrence: None)
  Receive Date: 20110720
  Receipt Date: 20090827
  Transmission Date: 20111222
  Serious: Yes (Death, Other)
  Sender: FDA-Public Use
  Company Number: US-BAYER-200931529NA

PATIENT
  Age: 50 Year
  Sex: Female
  Weight: 134 kg

DRUGS (51)
  1. GLYCOLAX [Concomitant]
     Dosage: 1 DAILY
     Route: 048
  2. AZMACORT [Concomitant]
     Dosage: 2 PUFFS DAILY
     Route: 048
  3. CHANTIX [Concomitant]
     Dosage: 1 TWICE DAILY
     Route: 048
  4. KAYEXALATE [Concomitant]
     Dosage: 30 G, UNK
     Route: 048
     Dates: start: 20070727
  5. RED BLOOD CELLS [Concomitant]
     Dosage: 5 U, UNK
     Route: 042
     Dates: start: 20070803, end: 20070803
  6. MIDAZOLAM HCL [Concomitant]
     Dosage: 20 MG, UNK
     Route: 042
     Dates: start: 20070803
  7. NAPROXEN [Concomitant]
     Dosage: 500 MG, BID AS NEEDED
     Route: 048
  8. LOPRESSOR [Concomitant]
     Dosage: 25 MG/ ? TAB TWICE DAILY
     Route: 048
  9. MIRALAX [Concomitant]
     Dosage: 17 G, BID
     Route: 048
     Dates: start: 20070722
  10. VANCOMYCIN [Concomitant]
     Dosage: 1-1.8 GRAM DAILY
     Route: 042
     Dates: start: 20070721
  11. PENICILLIN [Concomitant]
     Dosage: 24 MILLION UNITS
     Route: 042
     Dates: start: 20070726
  12. KEPPRA [Concomitant]
     Dosage: 500 MG EVERY 12 HRS
     Route: 042
     Dates: start: 20070725
  13. HYDROCORTISONE [Concomitant]
     Dosage: 50 MG EVERY 8 HRS X 24 HRS, THEN 25 MG EVERY 8 HRS
     Route: 042
     Dates: start: 20070725
  14. TRASYLOL [Suspect]
     Dosage: 50 ML/HOUR
     Route: 042
     Dates: start: 20070803, end: 20070803
  15. LASIX [Concomitant]
     Dosage: 100 MG, UNK
     Route: 042
     Dates: start: 20070803, end: 20070803
  16. COMBIVENT [Concomitant]
     Dosage: 1-2 PUFFS 4 TIMES DAILY AS NEEDED, INHALED
  17. VANCOMYCIN [Concomitant]
     Dosage: 1 G, UNK
     Route: 042
     Dates: start: 20070803
  18. PENICILLIN [Concomitant]
     Dosage: 4 MILLION UNITS EVERY 4 HOURS
     Route: 042
     Dates: start: 20070726
  19. PENICILLIN [Concomitant]
     Dosage: 24 MILLION INTERNATIONAL UNITS
     Route: 042
     Dates: start: 20070803
  20. CEFAZOLIN [Concomitant]
     Dosage: 1 G, EVERY 12 HRS
     Route: 042
     Dates: start: 20070721, end: 20070723
  21. SOLU-MEDROL [Concomitant]
     Dosage: 50 MG, UNK
     Route: 042
     Dates: start: 20070721, end: 20070725
  22. LORAZEPAM [Concomitant]
     Dosage: 1 MG, UNK
     Route: 042
     Dates: start: 20070723
  23. LORAZEPAM [Concomitant]
     Dosage: 1 UNK, UNK
     Route: 048
     Dates: start: 20070723
  24. FENTANYL-100 [Concomitant]
     Dosage: 450 MG, UNK
     Route: 042
     Dates: start: 20070803, end: 20070803
  25. VECURONIUM BROMIDE [Concomitant]
     Dosage: 150 MG, UNK
     Route: 042
     Dates: start: 20070803, end: 20070803
  26. FENOLDOPAM [Concomitant]
     Dosage: 0.1 MCG/KG/MIN
     Route: 042
     Dates: start: 20070803, end: 20070803
  27. MILRINONE [Concomitant]
     Dosage: 0.375 MCG/KG/MIN
     Route: 042
     Dates: start: 20070803
  28. LIDOCAINE [Concomitant]
     Dosage: 100 MG, UNK
     Route: 042
     Dates: start: 20070803, end: 20070803
  29. VICODIN [Concomitant]
     Dosage: 500/5 MG EVERY 6 HOURS AS NEEDED
     Route: 048
  30. RIFAMPIN [Concomitant]
     Dosage: 300 G EVERY 8-12 HOURS
     Route: 042
     Dates: start: 20070725
  31. ENOXAPARIN [Concomitant]
     Dosage: 40 MG/24HR, UNK
     Route: 058
     Dates: start: 20070719, end: 20070725
  32. DIGOXIN [Concomitant]
     Dosage: 0.25 MG, UNK
     Route: 048
     Dates: start: 20070731
  33. CRYOPRECIPITATES [Concomitant]
     Dosage: 50 G [70ML]
     Route: 042
     Dates: start: 20070803, end: 20070803
  34. PLASMA-LYTE 56 AND DEXTROSE 5% IN PLASTIC CONTAINER [Concomitant]
     Dosage: 2000 CC
     Route: 042
     Dates: start: 20070803, end: 20070803
  35. TRASYLOL [Suspect]
     Indication: MITRAL VALVE REPLACEMENT
     Dosage: 100 ML, PUMP PRIME
     Route: 042
     Dates: start: 20070803, end: 20070803
  36. TRASYLOL [Suspect]
     Indication: CORONARY REVASCULARISATION
     Dosage: 200 CC LOADING DOSE
     Route: 042
     Dates: start: 20070803, end: 20070803
  37. CIPROFLOXACIN [Concomitant]
     Dosage: 500 MGM/TWICEDAILY X 3 DAYS
     Route: 048
     Dates: end: 20070708
  38. SYNTHROID [Concomitant]
     Dosage: 0.175 MG/24HR, UNK
     Route: 048
  39. CEFAZOLIN [Concomitant]
     Dosage: 1 G
     Route: 042
     Dates: start: 20070803
  40. PLATELETS [Concomitant]
     Dosage: 389 ML, UNK
     Route: 042
     Dates: start: 20070803, end: 20070803
  41. ALBUMIN (HUMAN) [Concomitant]
     Dosage: 250 ML, UNK
     Route: 042
     Dates: start: 20070803, end: 20070803
  42. HYDROCORTISONE [Concomitant]
     Dosage: 100 MG, UNK
     Route: 042
     Dates: start: 20070803, end: 20070803
  43. FRESH FROZEN PLASMA [Concomitant]
     Dosage: 529 ML, UNK
     Route: 042
     Dates: start: 20070803, end: 20070803
  44. VISIPAQUE [Concomitant]
     Indication: CATHETERISATION CARDIAC
     Dosage: 60 ML, UNK
     Dates: start: 20070802
  45. FERROUS SULFATE TAB [Concomitant]
     Dosage: 325 MG/24HR, UNK
     Route: 048
  46. LASIX [Concomitant]
     Dosage: 120 MG/MORNING AND 40-80MG/EVENING
     Route: 048
  47. PROTAMINE SULFATE [Concomitant]
     Dosage: 250 MG, UNK
     Route: 042
     Dates: start: 20070803, end: 20070803
  48. PREDNISONE [Concomitant]
     Dosage: 10 MG/24HR, UNK
     Route: 048
  49. LISINOPRIL [Concomitant]
     Dosage: 5 MG/24HR, UNK
     Route: 048
     Dates: end: 20070722
  50. ETOMIDATE [Concomitant]
     Dosage: 20 MG, UNK
     Route: 042
     Dates: start: 20070803, end: 20070803
  51. HEPARIN [Concomitant]
     Dosage: 54000 U, UNK
     Route: 042
     Dates: start: 20070803, end: 20070803

REACTIONS (14)
  - RENAL INJURY [None]
  - EMOTIONAL DISTRESS [None]
  - FEAR [None]
  - ANHEDONIA [None]
  - ANXIETY [None]
  - DEATH [None]
  - RENAL FAILURE [None]
  - STRESS [None]
  - RENAL IMPAIRMENT [None]
  - PAIN [None]
  - CEREBROVASCULAR ACCIDENT [None]
  - UNEVALUABLE EVENT [None]
  - INJURY [None]
  - MULTI-ORGAN FAILURE [None]
